FAERS Safety Report 9107071 (Version 1)
Quarter: 2013Q1

REPORT INFORMATION
  Report Type: Spontaneous
  Country: US (occurrence: US)
  Receive Date: 20130221
  Receipt Date: 20130221
  Transmission Date: 20140127
  Serious: Yes (Hospitalization)
  Sender: FDA-Public Use
  Company Number: US-ELI_LILLY_AND_COMPANY-US201302004574

PATIENT
  Age: 86 Year
  Sex: Female

DRUGS (19)
  1. FORTEO [Suspect]
     Indication: OSTEOPOROSIS
     Dosage: 20 UG, QD
     Route: 065
     Dates: start: 201209
  2. CARVEDILOL [Concomitant]
     Dosage: 12.5 MG, BID
  3. LEVOTHYROXINE [Concomitant]
     Indication: THYROID DISORDER
  4. FUROSEMIDE [Concomitant]
     Indication: DIURETIC THERAPY
  5. POTASSIUM CHLORIDE [Concomitant]
  6. FERROUS FUMARATE W/VITAMINS NOS [Concomitant]
  7. VITAMIN D [Concomitant]
     Dosage: 5000 IU, QD
  8. MIRALAX [Concomitant]
     Indication: CONSTIPATION
  9. SENOKOT [Concomitant]
     Indication: CONSTIPATION
     Dosage: UNK
  10. CHLORDIAZEPOXIDE [Concomitant]
  11. SEROQUEL [Concomitant]
  12. GALANTAMINE [Concomitant]
  13. NEURONTIN [Concomitant]
  14. TYLENOL                                 /SCH/ [Concomitant]
  15. ALBUTEROL [Concomitant]
     Indication: DYSPNOEA
     Dosage: UNK, PRN
  16. PROCRIT [Concomitant]
  17. CLARITIN [Concomitant]
  18. BEANO [Concomitant]
     Indication: FLATULENCE
  19. VOLTAREN                                /SCH/ [Concomitant]
     Indication: ARTHRITIS

REACTIONS (5)
  - Pain in extremity [Unknown]
  - Muscular weakness [Unknown]
  - Dysstasia [Unknown]
  - Malaise [Unknown]
  - Pyrexia [Unknown]
